FAERS Safety Report 14701155 (Version 1)
Quarter: 2018Q1

REPORT INFORMATION
  Report Type: Spontaneous
  Country: US (occurrence: US)
  Receive Date: 20180328
  Receipt Date: 20180328
  Transmission Date: 20180509
  Serious: No
  Sender: FDA-Public Use
  Company Number: None

PATIENT
  Sex: Female

DRUGS (1)
  1. TALTZ [Suspect]
     Active Substance: IXEKIZUMAB
     Indication: PSORIASIS
     Dosage: 80MG Q2WKS SQ
     Route: 058
     Dates: start: 201802

REACTIONS (5)
  - Wrong technique in device usage process [None]
  - Injury associated with device [None]
  - Pollakiuria [None]
  - Urine output decreased [None]
  - Accidental underdose [None]
